FAERS Safety Report 4781773-5 (Version None)
Quarter: 2005Q3

REPORT INFORMATION
  Report Type: 
  Country: None (occurrence: None)
  Receive Date: 20050927
  Receipt Date: 20050825
  Transmission Date: 20060218
  Serious: No
  Sender: FDA-Public Use
  Company Number: 200513043BCC

PATIENT
  Age: 79 Year
  Sex: Female
  Weight: 64.4108 kg

DRUGS (5)
  1. ALEVE [Suspect]
     Indication: ARTHRITIS
     Dosage: 220 MG, ORAL
     Route: 048
     Dates: start: 20040901
  2. ALEVE [Suspect]
     Indication: ARTHRITIS
     Dosage: 220 MG, ORAL
     Route: 048
     Dates: start: 20050815
  3. DYAZIDE [Concomitant]
  4. CLONIDINE [Concomitant]
  5. ALBUTEROL [Concomitant]

REACTIONS (5)
  - AGITATION [None]
  - AMNESIA [None]
  - BLOOD PRESSURE SYSTOLIC INCREASED [None]
  - DIZZINESS [None]
  - SYNCOPE [None]
